FAERS Safety Report 25269393 (Version 1)
Quarter: 2025Q2

REPORT INFORMATION
  Report Type: Other
  Country: CA (occurrence: CA)
  Receive Date: 20250505
  Receipt Date: 20250505
  Transmission Date: 20250716
  Serious: Yes (Hospitalization)
  Sender: PFIZER
  Company Number: CA-PFIZER INC-202500092930

PATIENT
  Age: 76 Year
  Sex: Male

DRUGS (18)
  1. LORAZEPAM [Suspect]
     Active Substance: LORAZEPAM
     Route: 065
  2. CANDESARTAN CILEXETIL [Suspect]
     Active Substance: CANDESARTAN CILEXETIL
     Route: 065
  3. CITALOPRAM [Suspect]
     Active Substance: CITALOPRAM
     Route: 065
  4. CLONAZEPAM [Suspect]
     Active Substance: CLONAZEPAM
  5. CLOZAPINE [Suspect]
     Active Substance: CLOZAPINE
     Indication: Neuropsychological symptoms
     Route: 065
  6. CLOZAPINE [Suspect]
     Active Substance: CLOZAPINE
     Indication: Dementia with Lewy bodies
     Dosage: 6.25 MG, 1X/DAY
  7. CLOZAPINE [Suspect]
     Active Substance: CLOZAPINE
     Dosage: 50 MG, 1X/DAY
  8. LOXAPINE [Suspect]
     Active Substance: LOXAPINE
     Route: 065
  9. OLANZAPINE [Suspect]
     Active Substance: OLANZAPINE
     Indication: Social (pragmatic) communication disorder
     Route: 065
  10. OLANZAPINE [Suspect]
     Active Substance: OLANZAPINE
     Dosage: 2.5 MG, 1X/DAY
     Route: 065
  11. QUETIAPINE [Suspect]
     Active Substance: QUETIAPINE
     Indication: Hallucination, visual
     Dosage: 25 MG, 2X/DAY
  12. QUETIAPINE [Suspect]
     Active Substance: QUETIAPINE
     Dosage: 12.5 MG, 3X/DAY
  13. QUETIAPINE [Suspect]
     Active Substance: QUETIAPINE
     Dosage: 12.5 MG, 1X/DAY
  14. QUETIAPINE [Suspect]
     Active Substance: QUETIAPINE
     Route: 065
  15. QUETIAPINE [Suspect]
     Active Substance: QUETIAPINE
     Dosage: 100 MG, 1X/DAY
  16. RISPERIDONE [Suspect]
     Active Substance: RISPERIDONE
     Indication: Antipsychotic therapy
     Dosage: 0.25 MG, 2X/DAY
  17. RIVASTIGMINE [Suspect]
     Active Substance: RIVASTIGMINE
     Route: 065
  18. TRAZODONE [Suspect]
     Active Substance: TRAZODONE HYDROCHLORIDE

REACTIONS (8)
  - Cogwheel rigidity [Unknown]
  - Eyelid function disorder [Unknown]
  - Fall [Unknown]
  - Gait disturbance [Unknown]
  - Orthostatic hypotension [Unknown]
  - Sedation [Unknown]
  - Tremor [Unknown]
  - Off label use [Unknown]
